FAERS Safety Report 11726601 (Version 1)
Quarter: 2015Q4

REPORT INFORMATION
  Report Type: Report from Study
  Country: JP (occurrence: JP)
  Receive Date: 20151112
  Receipt Date: 20151112
  Transmission Date: 20160304
  Serious: Yes (Life-Threatening)
  Sender: FDA-Public Use
  Company Number: JP-ROCHE-1658368

PATIENT
  Age: 57 Year
  Sex: Female

DRUGS (1)
  1. TOCILIZUMAB [Suspect]
     Active Substance: TOCILIZUMAB
     Indication: RHEUMATOID ARTHRITIS
     Dosage: DATE OF MOST RECENT DOSE PRIOR TO SAE: 28/OCT/2014
     Route: 058
     Dates: start: 20141028, end: 20150428

REACTIONS (1)
  - Intra-abdominal haemorrhage [Unknown]

NARRATIVE: CASE EVENT DATE: 20150502
